FAERS Safety Report 11809787 (Version 1)
Quarter: 2015Q4

REPORT INFORMATION
  Report Type: Spontaneous
  Country: US (occurrence: US)
  Receive Date: 20151208
  Receipt Date: 20151208
  Transmission Date: 20160305
  Serious: Yes (Other)
  Sender: FDA-Public Use
  Company Number: US-BEH-2015056363

PATIENT
  Age: 75 Year
  Sex: Female
  Weight: 74 kg

DRUGS (32)
  1. PREDNISONE. [Suspect]
     Active Substance: PREDNISONE
  2. CALCIUM + D3 [Concomitant]
     Active Substance: CALCIUM\CHOLECALCIFEROL
  3. MIRAPEX [Concomitant]
     Active Substance: PRAMIPEXOLE DIHYDROCHLORIDE
  4. ACETAMINOPHEN. [Concomitant]
     Active Substance: ACETAMINOPHEN
  5. POTASSIUM CL ER [Concomitant]
  6. RECLAST [Concomitant]
     Active Substance: ZOLEDRONIC ACID
  7. SYMBICORT [Concomitant]
     Active Substance: BUDESONIDE\FORMOTEROL FUMARATE DIHYDRATE
  8. ASPIRIN EC [Concomitant]
     Active Substance: ASPIRIN
  9. VITAMIN D [Concomitant]
     Active Substance: CHOLECALCIFEROL
  10. ALPHA LIPOIC ACID [Concomitant]
     Active Substance: .ALPHA.-LIPOIC ACID
  11. WELLBUTRIN [Concomitant]
     Active Substance: BUPROPION HYDROCHLORIDE
  12. ZOFRAN [Concomitant]
     Active Substance: ONDANSETRON HYDROCHLORIDE
  13. VITAMIN C [Concomitant]
     Active Substance: ASCORBIC ACID
  14. SYNTHROID [Concomitant]
     Active Substance: LEVOTHYROXINE SODIUM
  15. SPIRIVA [Concomitant]
     Active Substance: TIOTROPIUM BROMIDE MONOHYDRATE
  16. VITAMIN B COMPLEX [Concomitant]
     Active Substance: CYANOCOBALAMIN\DEXPANTHENOL\NIACINAMIDE\PYRIDOXINE HYDROCHLORIDE\RIBOFLAVIN 5^-PHOSPHATE SODIUM\THIAMINE HYDROCHLORIDE\VITAMIN B COMPLEX
  17. SINGULAIR [Concomitant]
     Active Substance: MONTELUKAST SODIUM
  18. HYDROCHLOROTHIAZIDE. [Concomitant]
     Active Substance: HYDROCHLOROTHIAZIDE
  19. DIPHENHYDRAMINE. [Concomitant]
     Active Substance: DIPHENHYDRAMINE
  20. LIDOCAINE. [Concomitant]
     Active Substance: LIDOCAINE
  21. LIDOCAINE/PRILOCAINE [Concomitant]
  22. EPIPEN [Concomitant]
     Active Substance: EPINEPHRINE
  23. CEFTIN [Concomitant]
     Active Substance: CEFUROXIME AXETIL
  24. FLEXERIL [Concomitant]
     Active Substance: CYCLOBENZAPRINE HYDROCHLORIDE
  25. MAGNESIUM OXIDE. [Concomitant]
     Active Substance: MAGNESIUM OXIDE
  26. HIZENTRA [Suspect]
     Active Substance: HUMAN IMMUNOGLOBULIN G
     Indication: IMMUNODEFICIENCY COMMON VARIABLE
     Route: 058
  27. AZITHROMYCIN [Concomitant]
     Active Substance: AZITHROMYCIN ANHYDROUS
  28. GLIPIZIDE. [Concomitant]
     Active Substance: GLIPIZIDE
  29. LEXAPRO [Concomitant]
     Active Substance: ESCITALOPRAM OXALATE
  30. TURMERIC [Concomitant]
     Active Substance: TURMERIC
  31. PREVACID [Concomitant]
     Active Substance: LANSOPRAZOLE
  32. PROBIOTIC [Concomitant]
     Active Substance: PROBIOTICS NOS

REACTIONS (1)
  - Kidney infection [Unknown]

NARRATIVE: CASE EVENT DATE: 20151030
